FAERS Safety Report 9251406 (Version 1)
Quarter: 2013Q2

REPORT INFORMATION
  Report Type: Spontaneous
  Country: ZA (occurrence: ZA)
  Receive Date: 20130424
  Receipt Date: 20130424
  Transmission Date: 20140414
  Serious: Yes (Life-Threatening)
  Sender: FDA-Public Use
  Company Number: ZA-PFIZER INC-2013122818

PATIENT
  Age: 32 Year
  Sex: Female

DRUGS (2)
  1. ZITHROMAX [Suspect]
     Dosage: 4X500 MG, STAT (SINGLE DOSE)
     Route: 048
     Dates: start: 2011, end: 2011
  2. NEXIUM [Concomitant]
     Dosage: UNK

REACTIONS (4)
  - Cardiac arrest [Recovered/Resolved]
  - Hernia [Not Recovered/Not Resolved]
  - Heart rate decreased [Not Recovered/Not Resolved]
  - Dyspnoea [Not Recovered/Not Resolved]
